FAERS Safety Report 5488287-8 (Version None)
Quarter: 2007Q4

REPORT INFORMATION
  Report Type: 
  Country: None (occurrence: None)
  Receive Date: 20071017
  Receipt Date: 20071007
  Transmission Date: 20080405
  Serious: Yes (Other)
  Sender: FDA-Public Use
  Company Number: US-ROCHE-523502

PATIENT
  Age: 30 Year
  Sex: Female

DRUGS (5)
  1. PEG-INTERFERON A-2A (RO 25-8310) [Suspect]
     Route: 058
     Dates: start: 20070914
  2. RIBAVIRIN (NON-ROCHE) [Suspect]
     Dosage: BOX STATED ^ZYDUS PHARMACEUTICALS^
     Route: 048
     Dates: start: 20070914
  3. IBUPROFEN [Suspect]
     Indication: HEADACHE
     Route: 065
  4. MORPHINE SULFATE [Concomitant]
     Indication: PAIN
  5. XANAX [Concomitant]
     Indication: ANXIETY

REACTIONS (11)
  - ANXIETY [None]
  - ASTHMA [None]
  - DEHYDRATION [None]
  - DEPRESSION [None]
  - DIARRHOEA [None]
  - HEADACHE [None]
  - NAUSEA [None]
  - PYREXIA [None]
  - SINUSITIS [None]
  - VOMITING [None]
  - WHITE BLOOD CELL COUNT DECREASED [None]
